FAERS Safety Report 24254924 (Version 2)
Quarter: 2024Q4

REPORT INFORMATION
  Report Type: Spontaneous
  Country: US (occurrence: US)
  Receive Date: 20240827
  Receipt Date: 20241015
  Transmission Date: 20250115
  Serious: Yes (Hospitalization)
  Sender: PFIZER
  Company Number: US-PFIZER INC-PV202400050271

PATIENT
  Age: 11 Year
  Sex: Female
  Weight: 27.2 kg

DRUGS (2)
  1. GENOTROPIN [Suspect]
     Active Substance: SOMATROPIN
     Indication: Prader-Willi syndrome
     Dosage: DAILY DOSE 1.3 MG/DAY 7 DAYS/WEEK, DOSE INCREMENTS OF 0.1 MG
     Route: 058
     Dates: start: 20240412
  2. LEUPROLIDE ACETATE [Concomitant]
     Active Substance: LEUPROLIDE ACETATE
     Indication: Precocious puberty
     Dosage: 30 MG, EVERY 3 MONTHS (PED)

REACTIONS (2)
  - Tonsillar hypertrophy [Unknown]
  - Adenoidectomy [Unknown]
